FAERS Safety Report 5478070-1 (Version None)
Quarter: 2007Q4

REPORT INFORMATION
  Report Type: 
  Country: None (occurrence: None)
  Receive Date: 20071005
  Receipt Date: 20060920
  Transmission Date: 20080405
  Serious: No
  Sender: FDA-Public Use
  Company Number: US-BRISTOL-MYERS SQUIBB COMPANY-13515952

PATIENT
  Age: 69 Year
  Sex: Female
  Weight: 73 kg

DRUGS (4)
  1. AVAPRO [Suspect]
     Indication: HYPERTENSION
     Dates: start: 20060501
  2. NEXIUM [Concomitant]
  3. MAGNESIUM SULFATE [Concomitant]
  4. VITAMIN D [Concomitant]

REACTIONS (2)
  - ALOPECIA [None]
  - DYSPHONIA [None]
